FAERS Safety Report 23655014 (Version 2)
Quarter: 2024Q1

REPORT INFORMATION
  Report Type: Report from Study
  Country: US (occurrence: US)
  Receive Date: 20240320
  Receipt Date: 20240327
  Transmission Date: 20240409
  Serious: No
  Sender: FDA-Public Use
  Company Number: US-SANDOZ-SDZ2024US029105

PATIENT
  Age: 16 Year
  Sex: Male

DRUGS (4)
  1. OMNITROPE [Suspect]
     Active Substance: SOMATROPIN
     Indication: Short stature
     Dosage: 0.2 ML, QD
     Route: 058
     Dates: start: 20240313
  2. OMNITROPE [Suspect]
     Active Substance: SOMATROPIN
     Indication: Short stature
     Dosage: 0.2 ML, QD
     Route: 058
     Dates: start: 20240313
  3. OMNITROPE [Suspect]
     Active Substance: SOMATROPIN
     Dosage: 20 IU, QD
     Route: 058
     Dates: start: 20240313
  4. OMNITROPE [Suspect]
     Active Substance: SOMATROPIN
     Dosage: 20 IU, QD
     Route: 058
     Dates: start: 20240313

REACTIONS (2)
  - Injection site haemorrhage [Unknown]
  - Product storage error [Unknown]

NARRATIVE: CASE EVENT DATE: 20240313
